FAERS Safety Report 7809522-4 (Version None)
Quarter: 2011Q4

REPORT INFORMATION
  Report Type: 
  Country: None (occurrence: None)
  Receive Date: 20111012
  Receipt Date: 20111003
  Transmission Date: 20120403
  Serious: Yes (Hospitalization, Other)
  Sender: FDA-Public Use
  Company Number: PHHY2011US03446

PATIENT
  Sex: Female
  Weight: 94.5 kg

DRUGS (9)
  1. LASIX [Concomitant]
     Dosage: UNK UKN, UNK
  2. GLEEVEC [Suspect]
     Dosage: 400 MG, DAILY
     Route: 048
     Dates: start: 20110729
  3. ATENOLOL [Concomitant]
     Indication: HYPERTENSION
     Dosage: UNK UKN, UNK
  4. GLEEVEC [Suspect]
     Indication: GASTROINTESTINAL STROMAL TUMOUR
     Dosage: 400 MG, UNK
     Route: 048
     Dates: start: 20091016
  5. GLEEVEC [Suspect]
     Dosage: 800 MG, DAILY
     Route: 048
  6. GLYBURIDE [Concomitant]
     Dosage: UNK UKN, UNK
  7. GLEEVEC [Suspect]
     Dosage: 200 MG, UNK
     Route: 048
     Dates: start: 20110802
  8. LISINOPRIL [Concomitant]
     Dosage: UNK UKN, UNK
  9. SUCRALFATE [Concomitant]
     Dosage: UNK UKN, UNK

REACTIONS (3)
  - ULCER [None]
  - NEOPLASM RECURRENCE [None]
  - RASH [None]
